FAERS Safety Report 11324881 (Version 2)
Quarter: 2015Q3

REPORT INFORMATION
  Report Type: Spontaneous
  Country: JP (occurrence: JP)
  Receive Date: 20150730
  Receipt Date: 20150807
  Transmission Date: 20151125
  Serious: Yes (Death, Other)
  Sender: FDA-Public Use
  Company Number: JP-ELI_LILLY_AND_COMPANY-JP201506010909

PATIENT
  Age: 44 Year
  Sex: Male

DRUGS (2)
  1. CHLOR-TRIMETON ALLERGY SINUS [Concomitant]
     Indication: PREMEDICATION
     Dosage: UNK
     Dates: start: 20150626
  2. CYRAMZA [Suspect]
     Active Substance: RAMUCIRUMAB
     Indication: GASTRIC CANCER
     Dosage: 500 MG, OTHER
     Route: 042
     Dates: start: 20150626

REACTIONS (2)
  - Gastrointestinal haemorrhage [Unknown]
  - Malignant neoplasm progression [Fatal]

NARRATIVE: CASE EVENT DATE: 20150629
